FAERS Safety Report 17857984 (Version 5)
Quarter: 2022Q4

REPORT INFORMATION
  Report Type: Spontaneous
  Country: US (occurrence: US)
  Receive Date: 20200604
  Receipt Date: 20221013
  Transmission Date: 20230113
  Serious: Yes (Life-Threatening, Hospitalization, Disabling, Other)
  Sender: FDA-Public Use
  Company Number: US-SA-2020SA140390

PATIENT
  Age: 72 Year
  Sex: Female
  Weight: 99.773 kg

DRUGS (1)
  1. ZANTAC [Suspect]
     Active Substance: RANITIDINE HYDROCHLORIDE
     Dosage: 1 DF, QD
     Route: 048
     Dates: start: 1982, end: 1983

REACTIONS (7)
  - Rectal cancer [Unknown]
  - Neoplasm malignant [Unknown]
  - Rectal haemorrhage [Unknown]
  - Pain [Unknown]
  - Inflammation [Unknown]
  - Rectal discharge [Unknown]
  - Haemorrhage [Unknown]

NARRATIVE: CASE EVENT DATE: 20191001
